FAERS Safety Report 16765581 (Version 1)
Quarter: 2019Q3

REPORT INFORMATION
  Report Type: Spontaneous
  Country: US (occurrence: US)
  Receive Date: 20190713
  Receipt Date: 20190713
  Transmission Date: 20191005
  Serious: No
  Sender: FDA-Public Use
  Company Number: None

PATIENT
  Age: 60 Year
  Sex: Female
  Weight: 62.5 kg

DRUGS (1)
  1. DOXIL [Suspect]
     Active Substance: DOXORUBICIN HYDROCHLORIDE
     Dates: end: 20190620

REACTIONS (10)
  - Erythema [None]
  - Gait disturbance [None]
  - Pain in extremity [None]
  - Rash maculo-papular [None]
  - Mobility decreased [None]
  - Skin exfoliation [None]
  - Rash erythematous [None]
  - Swelling [None]
  - Skin tightness [None]
  - Dry skin [None]

NARRATIVE: CASE EVENT DATE: 20190626
